FAERS Safety Report 16377313 (Version 3)
Quarter: 2020Q2

REPORT INFORMATION
  Report Type: Report from Study
  Country: JP (occurrence: JP)
  Receive Date: 20190531
  Receipt Date: 20200604
  Transmission Date: 20200713
  Serious: Yes (Death, Hospitalization, Other)
  Sender: FDA-Public Use
  Company Number: JP-SA-2019SA147811

PATIENT

DRUGS (18)
  1. AFLIBERCEPT [Suspect]
     Active Substance: AFLIBERCEPT
     Indication: COLON CANCER
     Dosage: 4 MG/KG, QOW
     Route: 041
     Dates: start: 20190122, end: 20190319
  2. AFLIBERCEPT [Suspect]
     Active Substance: AFLIBERCEPT
     Dosage: 4 MG/KG, 1X
     Route: 041
     Dates: start: 20190109, end: 20190109
  3. FLUOROURACIL. [Suspect]
     Active Substance: FLUOROURACIL
     Dosage: BOLUS: 400 MG/M2, CONTINUOUS IV DRIP: 2400 MG/M2, 1X
     Route: 042
     Dates: start: 20181204, end: 20181204
  4. FLUOROURACIL. [Suspect]
     Active Substance: FLUOROURACIL
     Dosage: BOLUS: 400 MG/M2, CONTINUOUS IV DRIP: 2400 MG/M2, 1X
     Route: 042
     Dates: start: 20190109, end: 20190109
  5. FLUOROURACIL. [Suspect]
     Active Substance: FLUOROURACIL
     Dosage: BOLUS: 400 MG/M2, CONTINUOUS IV DRIP: 2400 MG/M2, QOW
     Route: 042
     Dates: start: 20190122, end: 20190305
  6. AZUNOL [SODIUM GUALENATE] [Concomitant]
     Active Substance: SODIUM GUALENATE
     Indication: STOMATITIS
     Dosage: UNK
     Route: 065
     Dates: start: 20181218, end: 20190402
  7. IRINOTECAN [Suspect]
     Active Substance: IRINOTECAN
     Dosage: 180 MG/M2, 1X
     Route: 065
     Dates: start: 20181204, end: 20181204
  8. DEXALTIN [Concomitant]
     Active Substance: DEXAMETHASONE
     Indication: STOMATITIS
     Dosage: UNK
     Route: 049
     Dates: start: 20181218
  9. AFLIBERCEPT [Suspect]
     Active Substance: AFLIBERCEPT
     Dosage: 4 MG/KG, 1X
     Route: 041
     Dates: start: 20181204, end: 20181204
  10. CALCIUM FOLINATE [Suspect]
     Active Substance: LEUCOVORIN CALCIUM
     Dosage: 200 MG/M2, 1X
     Route: 065
     Dates: start: 20181204, end: 20181204
  11. CALCIUM FOLINATE [Suspect]
     Active Substance: LEUCOVORIN CALCIUM
     Dosage: 200 MG/M2, 1X
     Route: 065
     Dates: start: 20190109, end: 20190109
  12. FLUOROURACIL. [Suspect]
     Active Substance: FLUOROURACIL
     Indication: COLON CANCER
     Dosage: BOLUS: 320 MG/M2, CONTINUOUS IV DRIP: 2000 MG/M2, 1X
     Route: 042
     Dates: start: 20190319, end: 20190319
  13. HACHIAZULE [SODIUM BICARBONATE;SODIUM GUALENATE] [Concomitant]
     Indication: STOMATITIS
     Dosage: UNK
     Route: 049
     Dates: start: 20190403
  14. IRINOTECAN [Suspect]
     Active Substance: IRINOTECAN
     Indication: COLON CANCER
     Dosage: 126 MG/M2, 1X
     Route: 065
     Dates: start: 20190319, end: 20190319
  15. IRINOTECAN [Suspect]
     Active Substance: IRINOTECAN
     Dosage: 137 MG/M2, 1X
     Route: 065
     Dates: start: 20190109, end: 20190109
  16. LOPENA [Concomitant]
     Indication: DIARRHOEA
     Dosage: UNK
     Route: 048
     Dates: start: 20190109, end: 20190402
  17. CALCIUM FOLINATE [Suspect]
     Active Substance: LEUCOVORIN CALCIUM
     Indication: COLON CANCER
     Dosage: 200 MG/M2, QOW
     Route: 065
     Dates: start: 20190122, end: 20190319
  18. IRINOTECAN [Suspect]
     Active Substance: IRINOTECAN
     Dosage: 137 MG/M2, QOW
     Route: 065
     Dates: start: 20190122, end: 20190305

REACTIONS (3)
  - Melaena [Recovered/Resolved]
  - Sudden death [Fatal]
  - Anaemia [Unknown]

NARRATIVE: CASE EVENT DATE: 20190219
